FAERS Safety Report 7574833 (Version 3)
Quarter: 2016Q1

REPORT INFORMATION
  Report Type: Report from Study
  Country: DE (occurrence: DE)
  Receive Date: 20100907
  Receipt Date: 20160328
  Transmission Date: 20160526
  Serious: Yes (Death, Life-Threatening)
  Sender: FDA-Public Use
  Company Number: DE-ROCHE-722362

PATIENT
  Age: 62 Year
  Sex: Male
  Weight: 76 kg

DRUGS (3)
  1. MIDAZOLAM [Concomitant]
     Active Substance: MIDAZOLAM\MIDAZOLAM HYDROCHLORIDE
     Indication: SEDATION
     Route: 065
     Dates: start: 20100822, end: 20100826
  2. PLACEBO [Suspect]
     Active Substance: UNSPECIFIED INGREDIENT
     Indication: MALIGNANT ASCITES
     Dosage: LAST DOSE PRIOR TO SAE 17 AUG 2010.
     Route: 033
     Dates: start: 20100817
  3. PLACEBO [Suspect]
     Active Substance: UNSPECIFIED INGREDIENT
     Indication: GASTROINTESTINAL CARCINOMA

REACTIONS (2)
  - Partial seizures [Recovered/Resolved]
  - Hepatic failure [Fatal]

NARRATIVE: CASE EVENT DATE: 20100818
